FAERS Safety Report 4513230-5 (Version None)
Quarter: 2004Q4

REPORT INFORMATION
  Report Type: 
  Country: None (occurrence: None)
  Receive Date: 20041130
  Receipt Date: 20041123
  Transmission Date: 20050328
  Serious: Yes (Death)
  Sender: FDA-Public Use
  Company Number: BE-JNJFOC-20040802534

PATIENT
  Age: 42 Year
  Sex: Male

DRUGS (9)
  1. PREPULSID [Suspect]
     Indication: DIABETIC GASTROPARESIS
     Route: 049
     Dates: start: 20030131, end: 20031207
  2. MORPHINE [Concomitant]
  3. DURAGESIC [Concomitant]
  4. LOSEC [Concomitant]
     Route: 049
  5. TICLID [Concomitant]
     Route: 049
  6. ZESTRIL [Concomitant]
     Route: 049
  7. METOPROLOL SUCCINATE [Concomitant]
     Route: 049
  8. LIPITOR [Concomitant]
  9. INSULIN [Concomitant]

REACTIONS (4)
  - ANXIETY [None]
  - ELECTROCARDIOGRAM QT PROLONGED [None]
  - MYOCARDIAL INFARCTION [None]
  - SUDDEN DEATH [None]
